FAERS Safety Report 7390103-4 (Version None)
Quarter: 2011Q2

REPORT INFORMATION
  Report Type: 
  Country: None (occurrence: None)
  Receive Date: 20110401
  Receipt Date: 20110316
  Transmission Date: 20111010
  Serious: Yes (Other)
  Sender: FDA-Public Use
  Company Number: US-PURDUE-USA-2010-0048635

PATIENT
  Sex: Male

DRUGS (2)
  1. OXYCONTIN [Suspect]
     Indication: PAIN
     Dosage: 160 MG, QID
     Route: 048
     Dates: start: 20100916
  2. MORPHINE SULFATE [Concomitant]
     Indication: BREAKTHROUGH PAIN
     Dosage: 100 MG, UNK

REACTIONS (7)
  - PAIN [None]
  - THERAPEUTIC RESPONSE DELAYED [None]
  - MEDICATION RESIDUE [None]
  - FEELING ABNORMAL [None]
  - INADEQUATE ANALGESIA [None]
  - EYE EXCISION [None]
  - DRUG TOLERANCE [None]
